FAERS Safety Report 4659876-5 (Version None)
Quarter: 2005Q2

REPORT INFORMATION
  Report Type: 
  Country: None (occurrence: None)
  Receive Date: 20050510
  Receipt Date: 20050427
  Transmission Date: 20051028
  Serious: Yes (Death, Other)
  Sender: FDA-Public Use
  Company Number: SUSI-2005-00159

PATIENT
  Age: 52 Year
  Sex: Male

DRUGS (15)
  1. FOSRENOL [Suspect]
     Indication: HYPERPHOSPHATAEMIA
     Dosage: 500 MG, 3X/DAY: TID
     Dates: start: 20050201
  2. GLUCOTROL [Concomitant]
  3. AVANDIA [Concomitant]
  4. ZEMPLAR [Concomitant]
  5. EPOGEN [Concomitant]
  6. VENOFER (SACCARATED IRON OXIDE) [Concomitant]
  7. ATORVASTATIN CALCIUM [Concomitant]
  8. METOPROLOL [Concomitant]
  9. MULTI-VITAMINS (VITAMINS NOS, FOLIC ACID, CALCIUM PANTOTHENATE) [Concomitant]
  10. AMLODIPINE [Concomitant]
  11. PANTOPRAZOLE SODIUM [Concomitant]
  12. ACETYL SALICYLIC ACID USP BAT [Concomitant]
  13. LASIX [Concomitant]
  14. QUININE SULFATE [Concomitant]
  15. PLAVIX [Concomitant]

REACTIONS (3)
  - ARTHRITIS BACTERIAL [None]
  - HYPERGLYCAEMIA [None]
  - MYOCARDIAL INFARCTION [None]
